FAERS Safety Report 10008731 (Version 1)
Quarter: 2014Q1

REPORT INFORMATION
  Report Type: Spontaneous
  Country: US (occurrence: US)
  Receive Date: 20140312
  Receipt Date: 20140312
  Transmission Date: 20141002
  Serious: No
  Sender: FDA-Public Use
  Company Number: US-INCYTE CORPORATION-2012IN000731

PATIENT
  Age: 68 Year
  Sex: Female

DRUGS (6)
  1. JAKAFI [Suspect]
     Indication: MYELOFIBROSIS
     Dosage: 20 MG, BID
     Route: 048
     Dates: start: 201111
  2. JAKAFI [Suspect]
     Dosage: 10 MG, BID
     Route: 048
  3. JAKAFI [Suspect]
     Dosage: 20 MG, BID
     Route: 048
     Dates: start: 201204
  4. ESTROGEN NOS [Concomitant]
     Dosage: 3 MG, QD
     Route: 048
  5. ZYRTEC [Concomitant]
     Dosage: 10 MG, QD
     Route: 048
  6. MULTIVITAMIN [Concomitant]
     Dosage: UNK

REACTIONS (2)
  - Platelet count abnormal [Unknown]
  - Pruritus [Not Recovered/Not Resolved]
